FAERS Safety Report 17893535 (Version 1)
Quarter: 2020Q2

REPORT INFORMATION
  Report Type: Spontaneous
  Country: FR (occurrence: FR)
  Receive Date: 20200615
  Receipt Date: 20200615
  Transmission Date: 20200714
  Serious: Yes (Hospitalization, Other)
  Sender: FDA-Public Use
  Company Number: FR-CADILA HEALTHCARE LIMITED-FR-ZYDUS-009196

PATIENT

DRUGS (4)
  1. ROPINIROLE. [Suspect]
     Active Substance: ROPINIROLE
     Indication: PARKINSON^S DISEASE
     Route: 065
  2. PRAMIPEXOLE. [Suspect]
     Active Substance: PRAMIPEXOLE
     Indication: PARKINSON^S DISEASE
     Dosage: 1.31 MILLIGRAM,1.31 MG PER DAY,(INTERVAL :1 DAYS)
  3. STALEVO [Suspect]
     Active Substance: CARBIDOPA\ENTACAPONE\LEVODOPA
     Indication: PARKINSON^S DISEASE
     Dosage: 225 MILLIGRAM,225 MG/DAY,(INTERVAL :1 DAYS)
     Route: 065
  4. RASAGILINE. [Suspect]
     Active Substance: RASAGILINE
     Indication: PARKINSON^S DISEASE
     Route: 065

REACTIONS (8)
  - Suicidal ideation [Unknown]
  - Impulse-control disorder [Recovered/Resolved]
  - Stereotypy [Unknown]
  - Weight decreased [Recovered/Resolved]
  - Hypersexuality [Recovered/Resolved]
  - Insomnia [Recovered/Resolved]
  - Depressive symptom [Recovered/Resolved]
  - Sedation [Recovered/Resolved]
